FAERS Safety Report 15243982 (Version 5)
Quarter: 2020Q2

REPORT INFORMATION
  Report Type: Spontaneous
  Country: US (occurrence: US)
  Receive Date: 20180806
  Receipt Date: 20200410
  Transmission Date: 20200713
  Serious: No
  Sender: FDA-Public Use
  Company Number: US-SA-2018SA212203

PATIENT
  Age: 17 Year
  Sex: Female

DRUGS (2)
  1. DUPIXENT [Suspect]
     Active Substance: DUPILUMAB
     Indication: PSORIASIS
     Dosage: 300 MG, QW
     Route: 058
     Dates: start: 20180630
  2. DUPIXENT [Suspect]
     Active Substance: DUPILUMAB
     Dosage: 300 MG, QOW
     Route: 058
     Dates: start: 201807

REACTIONS (9)
  - Eye irritation [Unknown]
  - Dry eye [Unknown]
  - Oral herpes [Unknown]
  - Lip swelling [Unknown]
  - Infection [Not Recovered/Not Resolved]
  - Ocular hyperaemia [Unknown]
  - Lip pruritus [Unknown]
  - Product use in unapproved indication [Unknown]
  - Abscess [Not Recovered/Not Resolved]

NARRATIVE: CASE EVENT DATE: 2018
